FAERS Safety Report 15661909 (Version 3)
Quarter: 2019Q1

REPORT INFORMATION
  Report Type: Report from Study
  Country: US (occurrence: US)
  Receive Date: 20181127
  Receipt Date: 20190208
  Transmission Date: 20190417
  Serious: Yes (Hospitalization, Other)
  Sender: FDA-Public Use
  Company Number: US-MALLINCKRODT-T201805090

PATIENT
  Sex: Female

DRUGS (3)
  1. REPOSITORY CORTICOTROPIN INJECTION [Suspect]
     Active Substance: CORTICOTROPIN
     Indication: RHEUMATOID ARTHRITIS
     Dosage: 80 UNITS/1 ML, 2 TIMES PER WEEK WEDNESDAY/SATURDAY
     Route: 058
     Dates: start: 20181020
  2. REPOSITORY CORTICOTROPIN INJECTION [Suspect]
     Active Substance: CORTICOTROPIN
     Indication: POLYMYOSITIS
  3. REPOSITORY CORTICOTROPIN INJECTION [Suspect]
     Active Substance: CORTICOTROPIN
     Indication: DERMATOMYOSITIS
     Dosage: 80 UNITS/1 ML, ONCE A WEEK SUNDAYS
     Route: 058

REACTIONS (9)
  - Heart rate increased [Unknown]
  - Gastroenteritis viral [Recovered/Resolved]
  - Fall [Unknown]
  - Pneumonia [Not Recovered/Not Resolved]
  - Product dose omission [Unknown]
  - Blood pressure increased [Recovering/Resolving]
  - Injection site bruising [Not Recovered/Not Resolved]
  - Head injury [Not Recovered/Not Resolved]
  - Injection site pain [Unknown]

NARRATIVE: CASE EVENT DATE: 2018
